FAERS Safety Report 6297225-X (Version None)
Quarter: 2009Q3

REPORT INFORMATION
  Report Type: 
  Country: None (occurrence: None)
  Receive Date: 20090805
  Receipt Date: 20070606
  Transmission Date: 20100115
  Serious: Yes (Other)
  Sender: FDA-Public Use
  Company Number: US-ASTRAZENECA-2006UW12016

PATIENT
  Age: 60 Year
  Sex: Female
  Weight: 107 kg

DRUGS (15)
  1. SEROQUEL [Suspect]
     Indication: PSYCHOTIC DISORDER
     Dosage: 25 MG, 100 MG, 250 MG QHS
     Route: 048
     Dates: start: 19990618
  2. SEROQUEL [Suspect]
     Route: 048
     Dates: start: 20010101, end: 20050101
  3. ZYPREXA [Suspect]
     Route: 065
  4. CLOZARIL [Concomitant]
  5. HALDOL [Concomitant]
  6. RISPERDAL [Concomitant]
     Dates: start: 19990101
  7. THORAZINE [Concomitant]
  8. TRILAFON [Concomitant]
  9. UNSPECIFIED PSYCHIATRIC MEDICATION [Concomitant]
  10. EFFEXOR [Concomitant]
     Dates: start: 19950523
  11. ABILIFY [Concomitant]
     Dosage: 5 - 15 MG
     Dates: start: 20040101
  12. ABILIFY [Concomitant]
     Route: 048
     Dates: start: 20040413
  13. VALIUM [Concomitant]
     Dosage: 1 MG QHS - 10 MG BID
     Route: 048
     Dates: start: 19860430
  14. PROZAC [Concomitant]
     Dosage: 40 MG - 60 MG QD
     Dates: start: 19950125
  15. PREDNISONE [Concomitant]
     Dates: start: 20000120

REACTIONS (6)
  - ADVERSE EVENT [None]
  - BLOOD GLUCOSE INCREASED [None]
  - DIABETES MELLITUS [None]
  - DIABETIC NEPHROPATHY [None]
  - DIABETIC RETINOPATHY [None]
  - TYPE 2 DIABETES MELLITUS [None]
